FAERS Safety Report 5835305-0 (Version None)
Quarter: 2008Q3

REPORT INFORMATION
  Report Type: 
  Country: None (occurrence: None)
  Receive Date: 20080801
  Receipt Date: 20080722
  Transmission Date: 20090109
  Serious: Yes (Other)
  Sender: FDA-Public Use
  Company Number: CHPA2008US03349

PATIENT
  Age: 63 Year
  Sex: Female
  Weight: 62.6 kg

DRUGS (5)
  1. TRANSDERM SCOP (NCH) (HYOSCINE HYDROBORMIDE) TRANS-THERAPEUTIC SYSTEM [Suspect]
     Indication: MOTION SICKNESS
     Dosage: 1.5 MG, Q72H, TRANSDERMAL
     Route: 062
     Dates: start: 20080123, end: 20080127
  2. SYNTHROID [Concomitant]
  3. CYTOMEL [Concomitant]
  4. FOSAMAX [Concomitant]
  5. PROZAC [Concomitant]

REACTIONS (9)
  - ACTIVITIES OF DAILY LIVING IMPAIRED [None]
  - ANXIETY [None]
  - CRYING [None]
  - DEPRESSION [None]
  - DISTURBANCE IN ATTENTION [None]
  - DRY MOUTH [None]
  - MEMORY IMPAIRMENT [None]
  - MENTAL DISORDER [None]
  - SPEECH DISORDER [None]
